FAERS Safety Report 9095899 (Version 1)
Quarter: 2013Q1

REPORT INFORMATION
  Report Type: Spontaneous
  Country: ES (occurrence: ES)
  Receive Date: 20130220
  Receipt Date: 20130220
  Transmission Date: 20140127
  Serious: Yes (Death)
  Sender: FDA-Public Use
  Company Number: ES-ELI_LILLY_AND_COMPANY-ES201302003509

PATIENT
  Sex: Male

DRUGS (1)
  1. FORSTEO [Suspect]
     Dosage: 20 UG, QD
     Route: 058
     Dates: start: 20121208

REACTIONS (2)
  - Asthma [Fatal]
  - Bronchitis [Fatal]
